FAERS Safety Report 18769334 (Version 1)
Quarter: 2021Q1

REPORT INFORMATION
  Report Type: Spontaneous
  Country: HR (occurrence: HR)
  Receive Date: 20210121
  Receipt Date: 20210121
  Transmission Date: 20210419
  Serious: Yes (Other)
  Sender: FDA-Public Use
  Company Number: HR-BAYER-2021-028699

PATIENT
  Age: 42 Year
  Sex: Female

DRUGS (3)
  1. NORMABEL [Suspect]
     Active Substance: DIAZEPAM
     Dosage: 1 DF = 1 TABLETA
     Route: 048
     Dates: start: 202012, end: 202012
  2. CLARITINE 10 MG [Suspect]
     Active Substance: LORATADINE
     Route: 048
     Dates: start: 202012, end: 202012
  3. BRUFEN [IBUPROFEN] [Suspect]
     Active Substance: IBUPROFEN
     Route: 048
     Dates: start: 202012, end: 202012

REACTIONS (4)
  - Somnolence [Unknown]
  - Suicide attempt [Unknown]
  - Tachycardia [Unknown]
  - Intentional overdose [Unknown]

NARRATIVE: CASE EVENT DATE: 202012
